FAERS Safety Report 5988335-2 (Version None)
Quarter: 2008Q4

REPORT INFORMATION
  Report Type: 
  Country: None (occurrence: None)
  Receive Date: 20081204
  Receipt Date: 20081124
  Transmission Date: 20090506
  Serious: Yes (Other)
  Sender: FDA-Public Use
  Company Number: JPI-P-005473

PATIENT
  Age: 16 Year
  Sex: Male

DRUGS (1)
  1. XYREM [Suspect]
     Indication: DRUG USE FOR UNKNOWN INDICATION
     Dosage: 7.5 GM (3.75 GM, 2 IN 1 D), ORAL
     Route: 048

REACTIONS (1)
  - ANGER [None]
